FAERS Safety Report 24550752 (Version 2)
Quarter: 2025Q1

REPORT INFORMATION
  Report Type: Spontaneous
  Country: JP (occurrence: JP)
  Receive Date: 20241025
  Receipt Date: 20250307
  Transmission Date: 20250409
  Serious: Yes (Death, Other)
  Sender: JAZZ
  Company Number: JP-JAZZ PHARMACEUTICALS-2024-JP-000829

PATIENT
  Age: 2 Year
  Sex: Male

DRUGS (1)
  1. DEFITELIO [Suspect]
     Active Substance: DEFIBROTIDE SODIUM
     Indication: Venoocclusive liver disease
     Dosage: 25 MILLIGRAM, QD
     Route: 042
     Dates: start: 20240105, end: 20240106

REACTIONS (2)
  - Cerebral haemorrhage [Fatal]
  - Adenovirus infection [Fatal]

NARRATIVE: CASE EVENT DATE: 20240108
